FAERS Safety Report 5727198-7 (Version None)
Quarter: 2008Q2

REPORT INFORMATION
  Report Type: 
  Country: None (occurrence: None)
  Receive Date: 20080430
  Receipt Date: 20071029
  Transmission Date: 20081010
  Serious: Yes (Hospitalization)
  Sender: FDA-Public Use
  Company Number: 57194/111

PATIENT
  Age: 44 Year
  Sex: Male

DRUGS (4)
  1. TERBINAFINE (TERBAFINE) TABLET [Suspect]
     Dosage: ORAL
     Route: 048
  2. AMLODIPINE [Concomitant]
  3. CARBIMAZOLE (CARBIMAZOLE) [Concomitant]
  4. DOXAZOSIN (DOXAZOSIN) [Concomitant]

REACTIONS (2)
  - HAEMATEMESIS [None]
  - MALLORY-WEISS SYNDROME [None]
